FAERS Safety Report 23880068 (Version 1)
Quarter: 2024Q2

REPORT INFORMATION
  Report Type: Spontaneous
  Country: PT (occurrence: PT)
  Receive Date: 20240521
  Receipt Date: 20240521
  Transmission Date: 20240716
  Serious: Yes (Other)
  Sender: FDA-Public Use
  Company Number: PT-PFIZER INC-PV202400064474

PATIENT
  Age: 76 Year
  Sex: Male

DRUGS (1)
  1. OXALIPLATIN [Suspect]
     Active Substance: OXALIPLATIN
     Indication: Colon cancer metastatic
     Dosage: UNK, CYCLIC

REACTIONS (4)
  - Neurotoxicity [Unknown]
  - Nausea [Unknown]
  - Bruxism [Unknown]
  - Gingival atrophy [Unknown]
